FAERS Safety Report 5382580-5 (Version None)
Quarter: 2007Q3

REPORT INFORMATION
  Report Type: 
  Country: None (occurrence: None)
  Receive Date: 20070710
  Receipt Date: 20070627
  Transmission Date: 20080115
  Serious: Yes (Hospitalization)
  Sender: FDA-Public Use
  Company Number: DE-SOLVAY-00307032911

PATIENT
  Age: 49 Year
  Sex: Male

DRUGS (8)
  1. FENTANYL TRANSDERMAL SYSTEM [Concomitant]
     Indication: PAIN
     Dosage: DAILY DOSE:  UNKNOWN
     Route: 065
  2. KREON GRANULAT [Suspect]
     Indication: PANCREATIC INSUFFICIENCY
     Dosage: DAILY DOSE: 3 DOSAGE FORM; DOSAGE FORM: SACHET
     Route: 048
     Dates: start: 20061201, end: 20070501
  3. KREON GRANULAT [Suspect]
     Dosage: DAILY DOSE: 8 DOSAGE FORM;  1 SACHET WITH FIRST MEAL, 2 WITH EACH 3 MAIN MEALS, 1 WITH LAST MEAL
     Route: 048
     Dates: start: 20070501
  4. NOVAMINSULFON [Concomitant]
     Indication: PAIN
     Dosage: DAILY DOSE:  UNKNOWN; FORM: DROP(S)
     Route: 065
  5. MCP [Concomitant]
     Indication: MALAISE
     Dosage: DAILY DOSE:  UNKNOWN
     Route: 065
  6. VALORON 8 MG [Concomitant]
     Indication: PAIN
     Dosage: DAILY DOSE:  UNKNOWN
     Route: 065
  7. OMEPRAZOLE [Concomitant]
     Indication: ILL-DEFINED DISORDER
     Dosage: DAILY DOSE:  UNKNOWN
     Route: 065
  8. OMNIFLORA N [Concomitant]
     Indication: INTESTINAL FUNCTIONAL DISORDER
     Dosage: DAILY DOSE:  UNKNOWN
     Route: 065

REACTIONS (6)
  - DYSPHAGIA [None]
  - DYSPNOEA [None]
  - GASTROINTESTINAL HAEMORRHAGE [None]
  - MALAISE [None]
  - VISUAL DISTURBANCE [None]
  - WEIGHT DECREASED [None]
